FAERS Safety Report 4367168-7 (Version None)
Quarter: 2004Q2

REPORT INFORMATION
  Report Type: 
  Country: None (occurrence: None)
  Receive Date: 20040528
  Receipt Date: 20031125
  Transmission Date: 20050107
  Serious: Yes (Hospitalization)
  Sender: FDA-Public Use
  Company Number: US-ROCHE-353435

PATIENT
  Age: 28 Year
  Sex: Male
  Weight: 98.9 kg

DRUGS (16)
  1. ACCUTANE [Suspect]
     Indication: ACNE
     Route: 048
     Dates: start: 20000115
  2. ACCUTANE [Suspect]
     Route: 048
     Dates: start: 20000515
  3. ACCUTANE [Suspect]
     Route: 048
     Dates: start: 20000717
  4. ACCUTANE [Suspect]
     Route: 048
  5. ACCUTANE [Suspect]
     Route: 048
     Dates: end: 20010115
  6. LIPITOR [Concomitant]
  7. XANAX [Concomitant]
  8. PRILOSEC [Concomitant]
  9. RELAFEN [Concomitant]
  10. PREDNISONE [Concomitant]
  11. PREVACID [Concomitant]
     Route: 048
     Dates: start: 20000112
  12. BUSPAR [Concomitant]
     Indication: ANXIETY
     Dosage: DOSAGE EGIMEN REPORTED AS: VARIES.
     Route: 048
     Dates: start: 20000124
  13. TYLENOL PM [Concomitant]
     Indication: INSOMNIA
     Route: 048
  14. RITALIN [Concomitant]
     Route: 048
     Dates: start: 20000112
  15. PAMINE [Concomitant]
     Route: 048
     Dates: start: 20000115
  16. IMITREX [Concomitant]
     Indication: MIGRAINE

REACTIONS (54)
  - ANGINA UNSTABLE [None]
  - ANXIETY [None]
  - ARTHRALGIA [None]
  - ARTHRITIS [None]
  - ASTHMA [None]
  - ATHEROSCLEROSIS [None]
  - BLOOD CHOLESTEROL INCREASED [None]
  - BLOOD GLUCOSE INCREASED [None]
  - BLOOD TRIGLYCERIDES INCREASED [None]
  - CARDIAC DISORDER [None]
  - CARDIOMEGALY [None]
  - CARDIOMYOPATHY [None]
  - CHEST PAIN [None]
  - CIRCULATORY COLLAPSE [None]
  - CORONARY ARTERY DISEASE [None]
  - CORONARY ARTERY STENOSIS [None]
  - DEPRESSION [None]
  - DERMAL CYST [None]
  - DERMATITIS CONTACT [None]
  - DIZZINESS [None]
  - DRY SKIN [None]
  - DYSPNOEA [None]
  - EJECTION FRACTION DECREASED [None]
  - ELECTROCARDIOGRAM ST-T CHANGE [None]
  - ELECTROCARDIOGRAM ST-T SEGMENT ABNORMAL [None]
  - FATIGUE [None]
  - GASTRIC DISORDER [None]
  - GASTROOESOPHAGEAL REFLUX DISEASE [None]
  - HEADACHE [None]
  - HEART INJURY [None]
  - HYPERHIDROSIS [None]
  - HYPERLIPIDAEMIA [None]
  - HYPERTENSION [None]
  - INJECTION SITE PAIN [None]
  - INSOMNIA [None]
  - MASS [None]
  - MUSCULOSKELETAL PAIN [None]
  - MYALGIA [None]
  - MYOCARDIAL INFARCTION [None]
  - NASOPHARYNGITIS [None]
  - PALPITATIONS [None]
  - PANIC ATTACK [None]
  - PROTHROMBIN LEVEL INCREASED [None]
  - PULMONARY FUNCTION TEST DECREASED [None]
  - RECURRING SKIN BOILS [None]
  - SINUS HEADACHE [None]
  - STOMACH DISCOMFORT [None]
  - SUBCUTANEOUS ABSCESS [None]
  - SWEAT GLAND INFECTION [None]
  - SYNCOPE [None]
  - TACHYCARDIA [None]
  - VENTRICULAR DYSFUNCTION [None]
  - VENTRICULAR HYPOKINESIA [None]
  - VISUAL DISTURBANCE [None]
